FAERS Safety Report 24073032 (Version 1)
Quarter: 2024Q3

REPORT INFORMATION
  Report Type: Spontaneous
  Country: US (occurrence: US)
  Receive Date: 20240710
  Receipt Date: 20240710
  Transmission Date: 20241016
  Serious: Yes (Death, Hospitalization, Other)
  Sender: FRESENIUS KABI
  Company Number: US-FreseniusKabi-FK202410636

PATIENT
  Age: 71 Year
  Sex: Female

DRUGS (2)
  1. AZITHROMYCIN [Suspect]
     Active Substance: AZITHROMYCIN
     Indication: Bronchitis
  2. LISINOPRIL [Concomitant]
     Active Substance: LISINOPRIL
     Indication: Bronchitis

REACTIONS (6)
  - Cardiac arrest [Fatal]
  - SJS-TEN overlap [Not Recovered/Not Resolved]
  - Multiple-drug resistance [Not Recovered/Not Resolved]
  - Pneumonia [Not Recovered/Not Resolved]
  - Bacterial sepsis [Not Recovered/Not Resolved]
  - Urinary tract infection [Not Recovered/Not Resolved]
